FAERS Safety Report 14460767 (Version 2)
Quarter: 2018Q2

REPORT INFORMATION
  Report Type: Report from Study
  Country: None (occurrence: DE)
  Receive Date: 20180130
  Receipt Date: 20180606
  Transmission Date: 20180711
  Serious: Yes (Hospitalization)
  Sender: FDA-Public Use
  Company Number: DE-BAUSCH-BL-2017-035213

PATIENT
  Age: 67 Year
  Sex: Female
  Weight: 73 kg

DRUGS (18)
  1. REVLIMID [Suspect]
     Active Substance: LENALIDOMIDE
     Indication: PLASMA CELL MYELOMA
     Route: 048
  2. REVLIMID [Suspect]
     Active Substance: LENALIDOMIDE
     Route: 048
  3. ELIQUIS [Concomitant]
     Active Substance: APIXABAN
     Indication: ARRHYTHMIA
     Route: 065
  4. ELIQUIS [Concomitant]
     Active Substance: APIXABAN
     Indication: ATRIAL FIBRILLATION
  5. MCP [Concomitant]
     Active Substance: METOCLOPRAMIDE HYDROCHLORIDE
     Indication: PROPHYLAXIS
     Route: 065
  6. DEXAMETHASONE. [Suspect]
     Active Substance: DEXAMETHASONE
     Dosage: 20 MG IN 1 WEEK
     Route: 065
     Dates: start: 20171011, end: 20171025
  7. NOVALGIN (CAFFEINE/PARACETAMOL/PROPYPHENAZONE) [Concomitant]
     Active Substance: ACETAMINOPHEN\CAFFEINE\PROPYPHENAZONE
     Indication: PROPHYLAXIS
     Route: 065
     Dates: start: 20170829
  8. TILIDIN 50 [Concomitant]
     Indication: PROPHYLAXIS
     Route: 065
     Dates: start: 20170829, end: 20171011
  9. BISOPROLOL-RATIOPHARM [Concomitant]
     Indication: HYPERTENSION
     Route: 065
  10. VELCADE [Concomitant]
     Active Substance: BORTEZOMIB
     Indication: PROPHYLAXIS
     Route: 058
  11. AMLODIPIN-RATIOPHARM [Concomitant]
     Active Substance: AMLODIPINE MALEATE
     Indication: HYPERTENSION
     Route: 065
  12. HCT-RATIOPHARM [Concomitant]
     Indication: HYPERTENSION
     Route: 065
  13. COTRIM-RATIOPHARM [Concomitant]
     Indication: PROPHYLAXIS
     Route: 065
     Dates: start: 20170920
  14. DEXAMETHASONE. [Suspect]
     Active Substance: DEXAMETHASONE
     Indication: PLASMA CELL MYELOMA
     Dosage: 20 MG IN 1 WEEK
     Route: 065
     Dates: start: 20170920, end: 20170927
  15. DEXAMETHASONE. [Suspect]
     Active Substance: DEXAMETHASONE
     Dosage: 20 MG IN 1 WEEK
     Route: 065
     Dates: start: 20171204, end: 20171218
  16. DEXAMETHASONE. [Suspect]
     Active Substance: DEXAMETHASONE
     Dosage: 20 MG IN 1 WEEK
     Route: 065
     Dates: start: 20171113, end: 20171127
  17. OLMESARTAN [Concomitant]
     Active Substance: OLMESARTAN
     Indication: PROPHYLAXIS
     Route: 065
  18. ACICLOVIR-RATIOPHARM [Concomitant]
     Active Substance: ACYCLOVIR
     Indication: PROPHYLAXIS
     Route: 065
     Dates: start: 20170920

REACTIONS (3)
  - Asthenia [Unknown]
  - Cardiac failure chronic [Not Recovered/Not Resolved]
  - Dyspnoea [Unknown]

NARRATIVE: CASE EVENT DATE: 20171204
